FAERS Safety Report 15088545 (Version 2)
Quarter: 2018Q3

REPORT INFORMATION
  Report Type: Spontaneous
  Country: DE (occurrence: DE)
  Receive Date: 20180629
  Receipt Date: 20180706
  Transmission Date: 20181010
  Serious: Yes (Hospitalization)
  Sender: FDA-Public Use
  Company Number: DE-CONCORDIA PHARMACEUTICALS INC.-E2B_00013180

PATIENT
  Age: 65 Year
  Sex: Male

DRUGS (5)
  1. QUILONUM [Concomitant]
     Active Substance: LITHIUM CARBONATE
     Route: 048
     Dates: start: 2014
  2. TRANYLCYPROMINE [Suspect]
     Active Substance: TRANYLCYPROMINE
     Route: 048
     Dates: start: 2014, end: 20171010
  3. TRANYLCYPROMINE [Suspect]
     Active Substance: TRANYLCYPROMINE
     Route: 048
     Dates: start: 20171011
  4. TRANYLCYPROMINE [Suspect]
     Active Substance: TRANYLCYPROMINE
     Route: 048
     Dates: start: 20171017, end: 20171020
  5. EQUILIBRIN [Concomitant]
     Dosage: EINNAHME SEIT JAHREN
     Route: 048

REACTIONS (2)
  - Hallucination [Recovered/Resolved]
  - Delusion [Recovered/Resolved]

NARRATIVE: CASE EVENT DATE: 20170920
